FAERS Safety Report 7889497-2 (Version None)
Quarter: 2011Q4

REPORT INFORMATION
  Report Type: 
  Country: None (occurrence: None)
  Receive Date: 20111103
  Receipt Date: 20111025
  Transmission Date: 20120403
  Serious: Yes (Death, Hospitalization, Other)
  Sender: FDA-Public Use
  Company Number: GR-CELGENEUS-066-21880-11102895

PATIENT
  Age: 54 Year
  Sex: Male

DRUGS (3)
  1. REVLIMID [Suspect]
     Indication: MULTIPLE MYELOMA
     Route: 048
  2. METHYLPREDNISOLONE [Concomitant]
     Route: 065
  3. COTRIM [Concomitant]
     Indication: PROPHYLAXIS
     Route: 065

REACTIONS (5)
  - CLOSTRIDIUM DIFFICILE COLITIS [None]
  - MULTI-ORGAN FAILURE [None]
  - CIRCULATORY COLLAPSE [None]
  - RENAL FAILURE ACUTE [None]
  - PANCYTOPENIA [None]
